FAERS Safety Report 8786038 (Version 1)
Quarter: 2012Q4

REPORT INFORMATION
  Report Type: Report from Study
  Country: US (occurrence: US)
  Receive Date: 20120914
  Receipt Date: 20120914
  Transmission Date: 20130627
  Serious: No
  Sender: FDA-Public Use
  Company Number: US-VERTEX PHARMACEUTICAL INC.-AE-2012-011567

PATIENT
  Sex: Male

DRUGS (6)
  1. INCIVEK [Suspect]
     Indication: HEPATITIS C
     Route: 048
  2. PEGINTERFERON REDIPEN [Concomitant]
     Indication: HEPATITIS C
  3. RIBAPAK [Concomitant]
     Indication: HEPATITIS C
  4. CLARITIN [Concomitant]
  5. ATIVAN [Concomitant]
  6. HYDROCHLOROTHIAZIDE [Concomitant]

REACTIONS (4)
  - Influenza like illness [Unknown]
  - Constipation [Unknown]
  - Pain [Unknown]
  - Fatigue [Unknown]
